FAERS Safety Report 5282284-3 (Version None)
Quarter: 2007Q1

REPORT INFORMATION
  Report Type: 
  Country: None (occurrence: None)
  Receive Date: 20070331
  Receipt Date: 20070321
  Transmission Date: 20070707
  Serious: Yes (Other)
  Sender: FDA-Public Use
  Company Number: US-PFIZER INC-2007023466

PATIENT
  Sex: Female

DRUGS (2)
  1. CAMPTOSAR [Suspect]
  2. AVASTIN [Concomitant]

REACTIONS (1)
  - HYPERTENSION [None]
